FAERS Safety Report 12394200 (Version 1)
Quarter: 2016Q2

REPORT INFORMATION
  Report Type: Report from Study
  Country: JP (occurrence: JP)
  Receive Date: 20160523
  Receipt Date: 20160523
  Transmission Date: 20160815
  Serious: Yes (Hospitalization)
  Sender: FDA-Public Use
  Company Number: JP-SA-2016SA091688

PATIENT
  Age: 73 Year
  Sex: Male
  Weight: 53 kg

DRUGS (6)
  1. ELPLAT [Suspect]
     Active Substance: OXALIPLATIN
     Indication: GASTRIC CANCER
     Route: 041
     Dates: start: 20160420, end: 20160420
  2. TAS-118 [Suspect]
     Active Substance: INVESTIGATIONAL PRODUCT
     Indication: GASTRIC CANCER
     Dosage: GRANULE
     Route: 048
     Dates: start: 20160203, end: 20160210
  3. ELPLAT [Suspect]
     Active Substance: OXALIPLATIN
     Indication: GASTRIC CANCER
     Route: 041
     Dates: start: 20160203, end: 20160203
  4. TAS-118 [Suspect]
     Active Substance: INVESTIGATIONAL PRODUCT
     Indication: GASTRIC CANCER
     Dosage: GRANULE
     Route: 048
     Dates: start: 20160420
  5. GLYCERIN. [Concomitant]
     Active Substance: GLYCERIN
     Dates: start: 20160205
  6. NORVASC [Concomitant]
     Active Substance: AMLODIPINE BESYLATE

REACTIONS (1)
  - Ileus [Recovered/Resolved]

NARRATIVE: CASE EVENT DATE: 20160421
